FAERS Safety Report 13538081 (Version 3)
Quarter: 2019Q1

REPORT INFORMATION
  Report Type: Spontaneous
  Country: FR (occurrence: FR)
  Receive Date: 20170512
  Receipt Date: 20190321
  Transmission Date: 20190417
  Serious: Yes (Death, Life-Threatening, Other)
  Sender: FDA-Public Use
  Company Number: FR-BAXTER-2017BAX019843

PATIENT
  Age: 58 Year
  Sex: Male

DRUGS (11)
  1. FEIBA [Suspect]
     Active Substance: ANTI-INHIBITOR COAGULANT COMPLEX
     Indication: OFF LABEL USE
     Dosage: HUMAN PLASMA PROTEIN WITH A FACTOR VIII INHIBITOR BY PASSING ACTIVITY
     Route: 042
     Dates: start: 20170425, end: 20170425
  2. ETOMIDATE LIPURO [Suspect]
     Active Substance: ETOMIDATE
     Indication: GENERAL ANAESTHESIA
     Route: 042
     Dates: start: 20170425, end: 20170425
  3. ADRENALINE [Suspect]
     Active Substance: EPINEPHRINE
     Indication: CARDIO-RESPIRATORY ARREST
     Dosage: (UNSPECIFIED TRADE NAME)
     Route: 065
     Dates: start: 20170425, end: 20170425
  4. CISATRACURIUM. [Suspect]
     Active Substance: CISATRACURIUM
     Indication: GENERAL ANAESTHESIA
     Dosage: (UNSPECIFIED TRADE NAME)
     Route: 065
     Dates: start: 20170425, end: 20170425
  5. DOBUTAMIN [Suspect]
     Active Substance: DOBUTAMINE HYDROCHLORIDE
     Indication: ADVERSE EVENT
     Dosage: 5 UG/KG/MIN
     Route: 065
     Dates: start: 20170505
  6. SEVOFLURANE BAXTER 1 ML/ML, LIQUIDE POUR INHALATION PAR VAPEUR [Suspect]
     Active Substance: SEVOFLURANE
     Indication: GENERAL ANAESTHESIA
     Route: 055
     Dates: start: 20170425, end: 20170425
  7. ZINNAT [Suspect]
     Active Substance: CEFUROXIME AXETIL
     Indication: ANTIBIOTIC PROPHYLAXIS
     Route: 042
     Dates: start: 20170425, end: 20170425
  8. ESMERON [Suspect]
     Active Substance: ROCURONIUM BROMIDE
     Indication: GENERAL ANAESTHESIA
     Route: 042
     Dates: start: 20170425, end: 20170425
  9. NORADRENALINE [Suspect]
     Active Substance: NOREPINEPHRINE
     Indication: ADVERSE EVENT
     Dosage: 2.4 MG/HOUR
     Route: 065
     Dates: start: 20170505
  10. FEIBA [Suspect]
     Active Substance: ANTI-INHIBITOR COAGULANT COMPLEX
     Indication: HAEMORRHAGE PROPHYLAXIS
     Dosage: HUMAN PLASMA PROTEIN WITH A FACTOR VIII INHIBITOR BY PASSING ACTIVITY
     Route: 042
     Dates: start: 20170425, end: 20170425
  11. ELIQUIS [Concomitant]
     Active Substance: APIXABAN
     Indication: CARDIOVASCULAR EVENT PROPHYLAXIS
     Route: 065

REACTIONS (9)
  - Multiple organ dysfunction syndrome [Fatal]
  - Metabolic disorder [Unknown]
  - Cardio-respiratory arrest [Recovering/Resolving]
  - Hepatic function abnormal [Unknown]
  - Gastrointestinal ischaemia [Unknown]
  - Renal impairment [Unknown]
  - Pulmonary sepsis [Unknown]
  - Septic shock [Unknown]
  - Haemorrhage [Unknown]

NARRATIVE: CASE EVENT DATE: 20170425
